FAERS Safety Report 4345388-5 (Version None)
Quarter: 2004Q2

REPORT INFORMATION
  Report Type: 
  Country: None (occurrence: None)
  Receive Date: 20040421
  Receipt Date: 20040408
  Transmission Date: 20050107
  Serious: Yes (Life-Threatening)
  Sender: FDA-Public Use
  Company Number: 2004024139

PATIENT
  Age: 71 Year
  Sex: Female

DRUGS (8)
  1. CETIRIZINE HCL [Suspect]
     Indication: RHINITIS ALLERGIC
     Dosage: 10 MG DAILY ORAL
     Route: 048
     Dates: start: 19960909
  2. BETAHISTINE (BETAHISTINE) [Suspect]
     Indication: VERTIGO
     Dosage: 48 MG DAILY ORAL
     Route: 048
     Dates: start: 20040320, end: 20040323
  3. ALBUTEROL SULFATE [Concomitant]
  4. GALENIC /FLUTICASONE/SALMETEROL/ (FLUTICASONE, SALMETEROL) [Concomitant]
  5. BENDROFLUMETHIAZIDE [Concomitant]
  6. DEXA-RHINOSPRAY /OLD FORM/ (DEXAMETHASONE ISONICOTINATE, NEOMYCIN SULF [Concomitant]
  7. ATORVASTATIN [Concomitant]
  8. ESOMEPRAZOLE [Concomitant]

REACTIONS (5)
  - ALLERGIC OEDEMA [None]
  - ANGIONEUROTIC OEDEMA [None]
  - CIRCUMORAL OEDEMA [None]
  - DRUG INTERACTION [None]
  - STRIDOR [None]
